FAERS Safety Report 11996217 (Version 2)
Quarter: 2016Q1

REPORT INFORMATION
  Report Type: Spontaneous
  Country: JP (occurrence: JP)
  Receive Date: 20160203
  Receipt Date: 20160223
  Transmission Date: 20160526
  Serious: No
  Sender: FDA-Public Use
  Company Number: JP-PFIZER INC-2016002363

PATIENT
  Age: 74 Year
  Sex: Male

DRUGS (13)
  1. CARBOPLATIN. [Concomitant]
     Active Substance: CARBOPLATIN
     Dosage: 400 MG, 1X/DAY
     Route: 041
     Dates: start: 20160105, end: 20160107
  2. LASTET [Concomitant]
     Active Substance: ETOPOSIDE
     Dosage: 120 MG, 1X/DAY
     Route: 041
     Dates: start: 20151028, end: 20151030
  3. CARBOPLATIN. [Concomitant]
     Active Substance: CARBOPLATIN
     Dosage: 400 MG, 1X/DAY
     Route: 041
     Dates: start: 20151202, end: 20151204
  4. LASTET [Concomitant]
     Active Substance: ETOPOSIDE
     Dosage: 120 MG, 1X/DAY
     Route: 041
     Dates: start: 20160105, end: 20160107
  5. LASTET [Concomitant]
     Active Substance: ETOPOSIDE
     Dosage: 120 MG, 1X/DAY
     Route: 041
     Dates: start: 20151202, end: 20151204
  6. CARBOPLATIN. [Concomitant]
     Active Substance: CARBOPLATIN
     Indication: CHEMOTHERAPY
     Dosage: 690 MG, 1X/DAY
     Route: 041
     Dates: start: 20150929, end: 20151001
  7. LASTET [Concomitant]
     Active Substance: ETOPOSIDE
     Indication: CHEMOTHERAPY
     Dosage: 120 MG, 1X/DAY
     Route: 041
     Dates: start: 20150929, end: 20151001
  8. BAYASPIRIN [Concomitant]
     Active Substance: ASPIRIN
     Dosage: 1 DF, 1X/DAY
     Route: 048
  9. LYRICA [Suspect]
     Active Substance: PREGABALIN
     Indication: NEURALGIA
     Dosage: 150 MG, 2X/DAY
     Route: 048
     Dates: start: 20150916, end: 20160104
  10. CARBOPLATIN. [Concomitant]
     Active Substance: CARBOPLATIN
     Dosage: 470 MG, 1X/DAY
     Route: 041
     Dates: start: 20151028, end: 20151030
  11. XYLOCAINE [Concomitant]
     Active Substance: LIDOCAINE HYDROCHLORIDE
     Indication: NEURALGIA
     Dosage: 200 MG, 3X/DAY
     Route: 041
     Dates: start: 20151005, end: 20151020
  12. OXINORM [Concomitant]
     Active Substance: OXYCODONE HYDROCHLORIDE
     Indication: CANCER PAIN
     Dosage: 5 MG, AS NEEDED
     Route: 048
     Dates: start: 20150908, end: 20151130
  13. CARVEDILOL. [Concomitant]
     Active Substance: CARVEDILOL
     Dosage: 0.5 DF, 2X/DAY
     Route: 048

REACTIONS (4)
  - Condition aggravated [Unknown]
  - Miosis [Unknown]
  - Neuralgia [Unknown]
  - Visual acuity reduced [Unknown]

NARRATIVE: CASE EVENT DATE: 20151005
